FAERS Safety Report 7128830-6 (Version None)
Quarter: 2010Q4

REPORT INFORMATION
  Report Type: 
  Country: None (occurrence: None)
  Receive Date: 20101130
  Receipt Date: 20080304
  Transmission Date: 20110411
  Serious: Yes (Other)
  Sender: FDA-Public Use
  Company Number: AU-ROCHE-742223

PATIENT

DRUGS (7)
  1. CELLCEPT [Suspect]
     Route: 065
  2. CYCLOPHOSPHAMIDE [Suspect]
     Route: 065
  3. CYCLOPHOSPHAMIDE [Suspect]
     Dosage: LOWERED DOSE
     Route: 065
  4. DOCETAXEL [Suspect]
     Route: 065
  5. DOCETAXEL [Suspect]
     Dosage: LOWERED DOSE
     Route: 065
  6. DOXORUBICIN [Suspect]
     Route: 065
  7. DOXORUBICIN [Suspect]
     Dosage: LOWERED DOSE
     Route: 065

REACTIONS (1)
  - GASTROINTESTINAL DISORDER [None]
